FAERS Safety Report 7438028-X (Version None)
Quarter: 2011Q2

REPORT INFORMATION
  Report Type: 
  Country: None (occurrence: None)
  Receive Date: 20110421
  Receipt Date: 20110421
  Transmission Date: 20111010
  Serious: Yes (Hospitalization, Other)
  Sender: FDA-Public Use
  Company Number: None

PATIENT
  Age: 50 Year
  Sex: Female
  Weight: 56.6996 kg

DRUGS (2)
  1. LISINOPRIL [Suspect]
     Indication: HYPERTENSION
     Dosage: 10MG = 1 PILL EVERY 24 HRS. PO
     Route: 048
     Dates: start: 20110309, end: 20110413
  2. LISINOPRIL AND HYDROCHLOROTHIAZIDE [Suspect]
     Indication: HYPERTENSION
     Dosage: 20-12.5MG = 1 PILL EVERY 24 HRS. PO
     Route: 048
     Dates: start: 20110414, end: 20110415

REACTIONS (14)
  - VISUAL IMPAIRMENT [None]
  - NAUSEA [None]
  - DECREASED APPETITE [None]
  - SENSATION OF HEAVINESS [None]
  - TREMOR [None]
  - SPEECH DISORDER [None]
  - GAIT DISTURBANCE [None]
  - ASTHENIA [None]
  - HEADACHE [None]
  - EYE PAIN [None]
  - NECK PAIN [None]
  - MENTAL IMPAIRMENT [None]
  - WEIGHT DECREASED [None]
  - VOMITING [None]
